FAERS Safety Report 6433093-0 (Version None)
Quarter: 2009Q4

REPORT INFORMATION
  Report Type: 
  Country: None (occurrence: None)
  Receive Date: 20091105
  Receipt Date: 20091027
  Transmission Date: 20100525
  Serious: Yes (Death)
  Sender: FDA-Public Use
  Company Number: 2009AL006872

PATIENT
  Age: 36 Year
  Sex: Female

DRUGS (12)
  1. BUSPIRONE HCL [Suspect]
  2. CARBAMAZEPINE [Suspect]
  3. CLONAZEPAM [Suspect]
  4. FEVERALL [Suspect]
     Route: 054
  5. LIPITOR [Concomitant]
  6. SOMA [Concomitant]
  7. PREVACID [Concomitant]
  8. ALLEGRA [Concomitant]
  9. METRONIDAZOLE [Concomitant]
  10. PROPOXYPHENE HCL CAP [Concomitant]
  11. CELEXA [Concomitant]
  12. ZYPREXA [Concomitant]

REACTIONS (6)
  - HEPATOMEGALY [None]
  - LEFT VENTRICULAR HYPERTROPHY [None]
  - MULTI-ORGAN DISORDER [None]
  - OBESITY [None]
  - POISONING [None]
  - PULMONARY OEDEMA [None]
